FAERS Safety Report 8102449-2 (Version None)
Quarter: 2012Q1

REPORT INFORMATION
  Report Type: 
  Country: None (occurrence: None)
  Receive Date: 20120126
  Receipt Date: 20120113
  Transmission Date: 20120608
  Serious: Yes (Death)
  Sender: FDA-Public Use
  Company Number: FK201200096

PATIENT
  Age: 58 Year
  Sex: Female
  Weight: 58 kg

DRUGS (5)
  1. PROTAMINE SULFATE [Suspect]
     Indication: HEPARIN NEUTRALISATION THERAPY
     Dates: start: 20111223, end: 20111223
  2. PROTAMINE SULFATE [Suspect]
  3. QUINAPRIL HCL [Concomitant]
  4. FUROSEMIDE [Concomitant]
  5. PROTAMINE SULFATE [Suspect]

REACTIONS (1)
  - PROCEDURAL COMPLICATION [None]
